FAERS Safety Report 7812941-3 (Version None)
Quarter: 2011Q4

REPORT INFORMATION
  Report Type: 
  Country: None (occurrence: None)
  Receive Date: 20111013
  Receipt Date: 20111006
  Transmission Date: 20120403
  Serious: Yes (Hospitalization)
  Sender: FDA-Public Use
  Company Number: IE-PFIZER INC-2011239511

PATIENT
  Age: 12 Year
  Sex: Female

DRUGS (2)
  1. TOLTERODINE TARTRATE [Suspect]
     Indication: BLADDER DISORDER
     Dosage: 4 MG, UNK
  2. LIGNOSPAN SPECIAL [Suspect]
     Indication: LOCAL ANAESTHESIA
     Dosage: 2.2 ML, SINGLE (X2)
     Route: 050
     Dates: start: 20110919

REACTIONS (2)
  - SOMATOFORM DISORDER [None]
  - TREMOR [None]
